FAERS Safety Report 20743145 (Version 1)
Quarter: 2022Q2

REPORT INFORMATION
  Report Type: Spontaneous
  Country: US (occurrence: US)
  Receive Date: 20220425
  Receipt Date: 20220425
  Transmission Date: 20220720
  Serious: No
  Sender: FDA-Public Use
  Company Number: US-APOTEX-2022AP004383

PATIENT
  Sex: Male

DRUGS (1)
  1. AZELASTINE HYDROCHLORIDE [Suspect]
     Active Substance: AZELASTINE HYDROCHLORIDE
     Indication: Hypersensitivity
     Dosage: 4 DOSAGE FORM, BID
     Route: 045

REACTIONS (4)
  - Underdose [Unknown]
  - Drug delivery system issue [Unknown]
  - Product delivery mechanism issue [Unknown]
  - No adverse event [Unknown]
